FAERS Safety Report 19299889 (Version 1)
Quarter: 2021Q2

REPORT INFORMATION
  Report Type: Spontaneous
  Country: US (occurrence: US)
  Receive Date: 20210524
  Receipt Date: 20210524
  Transmission Date: 20210717
  Serious: No
  Sender: FDA-Public Use
  Company Number: None

PATIENT
  Age: 49 Year
  Sex: Female
  Weight: 80.1 kg

DRUGS (4)
  1. SUPERDEFENSE BROAD SPECTRUM SPF 25 FATIGUE PLUS 1ST SIGNS OF AGE MULTI?CORRECTING [Suspect]
     Active Substance: AVOBENZONE\OCTISALATE
     Indication: DRY SKIN PROPHYLAXIS
     Dosage: ?          QUANTITY:1 1 SMALL SMEAR;?
     Route: 061
     Dates: start: 20210521, end: 20210521
  2. ADDERALL [Concomitant]
     Active Substance: AMPHETAMINE ASPARTATE\AMPHETAMINE SULFATE\DEXTROAMPHETAMINE SACCHARATE\DEXTROAMPHETAMINE SULFATE
  3. NEXIUM [Concomitant]
     Active Substance: ESOMEPRAZOLE MAGNESIUM
  4. SUPERDEFENSE BROAD SPECTRUM SPF 25 FATIGUE PLUS 1ST SIGNS OF AGE MULTI?CORRECTING [Suspect]
     Active Substance: AVOBENZONE\OCTISALATE
     Indication: PROPHYLAXIS AGAINST SOLAR RADIATION
     Dosage: ?          QUANTITY:1 1 SMALL SMEAR;?
     Route: 061
     Dates: start: 20210521, end: 20210521

REACTIONS (1)
  - Rash [None]

NARRATIVE: CASE EVENT DATE: 20210521
